FAERS Safety Report 16527923 (Version 1)
Quarter: 2019Q3

REPORT INFORMATION
  Report Type: Spontaneous
  Country: US (occurrence: US)
  Receive Date: 20190703
  Receipt Date: 20190703
  Transmission Date: 20191004
  Serious: Yes (Other)
  Sender: FDA-Public Use
  Company Number: US-BAUSCH-BL-2019-018774

PATIENT
  Age: 57 Year
  Sex: Female

DRUGS (1)
  1. CVS EYEWASH [Suspect]
     Active Substance: WATER
     Indication: PRODUCT USED FOR UNKNOWN INDICATION
     Route: 047
     Dates: start: 20190623, end: 20190624

REACTIONS (3)
  - Chemical burns of eye [Recovering/Resolving]
  - Corneal abrasion [Recovering/Resolving]
  - Hypersensitivity [Recovering/Resolving]

NARRATIVE: CASE EVENT DATE: 201906
